FAERS Safety Report 10830552 (Version 2)
Quarter: 2015Q1

REPORT INFORMATION
  Report Type: Spontaneous
  Country: DE (occurrence: DE)
  Receive Date: 20150219
  Receipt Date: 20150313
  Transmission Date: 20150721
  Serious: Yes (Hospitalization)
  Sender: FDA-Public Use
  Company Number: DE-JNJFOC-20150208426

PATIENT
  Age: 50 Year
  Sex: Male
  Weight: 100 kg

DRUGS (13)
  1. NAPROXEN. [Concomitant]
     Active Substance: NAPROXEN
     Route: 048
  2. XARELTO [Suspect]
     Active Substance: RIVAROXABAN
     Indication: ANTICOAGULANT THERAPY
     Route: 048
  3. ZOLPIDEM [Concomitant]
     Active Substance: ZOLPIDEM\ZOLPIDEM TARTRATE
     Route: 065
  4. PERAZINE [Concomitant]
     Active Substance: PERAZINE
     Indication: POST-TRAUMATIC STRESS DISORDER
     Route: 065
  5. MIRTAZAPIN [Concomitant]
     Active Substance: MIRTAZAPINE
     Indication: POST-TRAUMATIC STRESS DISORDER
     Route: 048
  6. PERAZINE [Concomitant]
     Active Substance: PERAZINE
     Indication: POST-TRAUMATIC STRESS DISORDER
     Route: 065
  7. PERAZINE [Concomitant]
     Active Substance: PERAZINE
     Indication: POST-TRAUMATIC STRESS DISORDER
     Route: 065
  8. TRAMADOL [Concomitant]
     Active Substance: TRAMADOL
     Dosage: 20-40
     Route: 048
  9. PERAZINE [Concomitant]
     Active Substance: PERAZINE
     Indication: POST-TRAUMATIC STRESS DISORDER
     Route: 065
  10. PERAZINE [Concomitant]
     Active Substance: PERAZINE
     Indication: POST-TRAUMATIC STRESS DISORDER
     Route: 065
  11. CITALOPRAM [Concomitant]
     Active Substance: CITALOPRAM HYDROBROMIDE
     Indication: POST-TRAUMATIC STRESS DISORDER
     Route: 048
  12. XARELTO [Suspect]
     Active Substance: RIVAROXABAN
     Indication: THROMBOSIS PROPHYLAXIS
     Route: 048
  13. PERAZINE [Concomitant]
     Active Substance: PERAZINE
     Indication: POST-TRAUMATIC STRESS DISORDER
     Route: 065

REACTIONS (3)
  - Pulmonary embolism [Unknown]
  - Drug ineffective [Unknown]
  - Venous thrombosis limb [Unknown]

NARRATIVE: CASE EVENT DATE: 20141024
